FAERS Safety Report 7200269-4 (Version None)
Quarter: 2010Q4

REPORT INFORMATION
  Report Type: 
  Country: None (occurrence: None)
  Receive Date: 20101228
  Receipt Date: 20101223
  Transmission Date: 20110411
  Serious: Yes (Hospitalization)
  Sender: FDA-Public Use
  Company Number: B0672036A

PATIENT
  Sex: Male

DRUGS (8)
  1. KEPPRA [Suspect]
     Route: 065
     Dates: start: 20091231
  2. LAMOTRIGINE [Suspect]
     Route: 065
  3. LYRICA [Suspect]
     Dosage: 50MG THREE TIMES PER DAY
     Route: 065
  4. TAMSULOSIN HYDROCHLORIDE [Concomitant]
  5. SOLIFENACIN SUCCINATE [Concomitant]
  6. OMEPRAZOLE [Concomitant]
     Route: 048
  7. DEXAMETHASONE [Concomitant]
     Route: 048
  8. DIAZEPAM [Concomitant]
     Route: 048

REACTIONS (6)
  - ABNORMAL DREAMS [None]
  - CONVULSION [None]
  - DRUG DISPENSING ERROR [None]
  - FEELING DRUNK [None]
  - SYNCOPE [None]
  - VISUAL IMPAIRMENT [None]
